FAERS Safety Report 8811401 (Version 2)
Quarter: 2012Q4

REPORT INFORMATION
  Report Type: 
  Country: US (occurrence: US)
  Receive Date: 20120927
  Receipt Date: 20121106
  Transmission Date: 20130627
  Serious: Yes (Other)
  Sender: FDA-Public Use
  Company Number: US-PFIZER INC-2012236660

PATIENT
  Age: 84 Year
  Sex: Male
  Weight: 72.56 kg

DRUGS (4)
  1. LIPITOR [Suspect]
     Indication: HIGH CHOLESTEROL
     Dosage: 20 mg, daily
  2. LIPITOR [Suspect]
     Dosage: 20 mg, daily
  3. FINASTERIDE [Concomitant]
     Dosage: 5 mg, daily
  4. ATENOLOL [Concomitant]
     Indication: BLOOD PRESSURE ABNORMAL
     Dosage: 50 mg, daily

REACTIONS (6)
  - Heart rate irregular [Unknown]
  - Heart rate irregular [Unknown]
  - Muscle spasms [Not Recovered/Not Resolved]
  - Gait disturbance [Unknown]
  - Limb discomfort [Unknown]
  - Pain in extremity [Unknown]
